FAERS Safety Report 4917080-7 (Version None)
Quarter: 2006Q1

REPORT INFORMATION
  Report Type: 
  Country: None (occurrence: None)
  Receive Date: 20060214
  Receipt Date: 20060130
  Transmission Date: 20060701
  Serious: Yes (Death)
  Sender: FDA-Public Use
  Company Number: A-CH2006-11543

PATIENT
  Age: 63 Year
  Sex: Female
  Weight: 47 kg

DRUGS (10)
  1. TRACLEER [Suspect]
     Indication: PULMONARY HYPERTENSION
     Dosage: 125 MG, BID, ORAL  : 62.5 MG, BID, ORAL
     Route: 048
     Dates: start: 20031223, end: 20040118
  2. TRACLEER [Suspect]
     Indication: PULMONARY HYPERTENSION
     Dosage: 125 MG, BID, ORAL  : 62.5 MG, BID, ORAL
     Route: 048
     Dates: start: 20040119, end: 20051221
  3. LASIX [Concomitant]
  4. ALDACTONE [Concomitant]
  5. SINTROM [Concomitant]
  6. LEVOTHYROXINE SODIUM [Concomitant]
  7. TRAZOLAN (TRAZODONE HYDROCHLORIDE) [Concomitant]
  8. CORDARONE [Concomitant]
  9. XANAX [Concomitant]
  10. PAROXETINE HCL [Concomitant]

REACTIONS (5)
  - CARDIO-RESPIRATORY ARREST [None]
  - CARDIOPULMONARY FAILURE [None]
  - MALAISE [None]
  - SUDDEN DEATH [None]
  - SYNCOPE [None]
